FAERS Safety Report 7157977-3 (Version None)
Quarter: 2010Q4

REPORT INFORMATION
  Report Type: 
  Country: None (occurrence: None)
  Receive Date: 20101214
  Receipt Date: 20101202
  Transmission Date: 20110411
  Serious: Yes (Hospitalization)
  Sender: FDA-Public Use
  Company Number: AU-CELGENEUS-009-C5013-08060535

PATIENT
  Sex: Male
  Weight: 70 kg

DRUGS (6)
  1. CC-5013 [Suspect]
     Indication: MULTIPLE MYELOMA
     Route: 048
     Dates: start: 20080312, end: 20080606
  2. CC-5013 [Suspect]
     Route: 048
     Dates: start: 20080611
  3. CC-5013 [Suspect]
     Route: 048
     Dates: start: 20070312
  4. PLACEBO FOR CC-5013 [Suspect]
     Indication: MULTIPLE MYELOMA
     Route: 048
  5. MELPHALAN [Suspect]
     Indication: MULTIPLE MYELOMA
     Route: 065
     Dates: start: 20070312, end: 20071116
  6. PREDNISONE [Suspect]
     Indication: MULTIPLE MYELOMA
     Route: 065
     Dates: start: 20070312, end: 20071116

REACTIONS (2)
  - ANGIOEDEMA [None]
  - URTICARIA [None]
